FAERS Safety Report 23773839 (Version 1)
Quarter: 2024Q2

REPORT INFORMATION
  Report Type: Spontaneous
  Country: US (occurrence: None)
  Receive Date: 20240422
  Receipt Date: 20240422
  Transmission Date: 20240716
  Serious: No
  Sender: FDA-Public Use
  Company Number: None

PATIENT
  Age: 49 Year
  Sex: Male

DRUGS (12)
  1. TACROLIMUS [Suspect]
     Active Substance: TACROLIMUS
     Indication: Nephritis
     Dosage: OTHER FREQUENCY : MORNING;?
     Route: 048
  2. TACROLIMUS [Suspect]
     Active Substance: TACROLIMUS
     Dosage: OTHER FREQUENCY : EVENING;?
     Route: 048
     Dates: start: 20211110
  3. ALBUTEROL AER HFA [Concomitant]
  4. AMLODIPINE [Concomitant]
     Active Substance: AMLODIPINE BESYLATE
  5. ATORVASTATIN [Concomitant]
     Active Substance: ATORVASTATIN
  6. AZITHROMYCIN [Concomitant]
     Active Substance: AZITHROMYCIN
  7. CYCLOPHOSPH [Concomitant]
  8. DEPO-MEDROL [Concomitant]
     Active Substance: METHYLPREDNISOLONE ACETATE
  9. ENALAPRIL [Concomitant]
     Active Substance: ENALAPRIL
  10. FUROSEMIDE [Concomitant]
     Active Substance: FUROSEMIDE
  11. HYDRALAZINE [Concomitant]
     Active Substance: HYDRALAZINE HYDROCHLORIDE
  12. LABETALOL [Concomitant]
     Active Substance: LABETALOL\LABETALOL HYDROCHLORIDE

REACTIONS (1)
  - Neoplasm [None]

NARRATIVE: CASE EVENT DATE: 20240318
